FAERS Safety Report 9272110 (Version 1)
Quarter: 2013Q2

REPORT INFORMATION
  Report Type: Spontaneous
  Country: IT (occurrence: IT)
  Receive Date: 20130506
  Receipt Date: 20130506
  Transmission Date: 20140414
  Serious: Yes (Hospitalization)
  Sender: FDA-Public Use
  Company Number: IT-BAYER-2013-053728

PATIENT
  Age: 87 Year
  Sex: Female

DRUGS (4)
  1. CARDIOASPIRIN [Suspect]
     Dosage: 100 MG, QD
     Route: 048
     Dates: start: 20080126, end: 20130409
  2. CONGESCOR [Concomitant]
     Dosage: DAILY DOSE 5 MG
     Dates: start: 20101123, end: 20130409
  3. LENTO-KALIUM [Concomitant]
  4. LASIX [Concomitant]

REACTIONS (4)
  - Hypovolaemic shock [Recovering/Resolving]
  - Haematemesis [Recovering/Resolving]
  - Melaena [Recovering/Resolving]
  - Gastrointestinal haemorrhage [Recovering/Resolving]
